FAERS Safety Report 13565249 (Version 4)
Quarter: 2017Q4

REPORT INFORMATION
  Report Type: Spontaneous
  Country: US (occurrence: US)
  Receive Date: 20170519
  Receipt Date: 20171006
  Transmission Date: 20180320
  Serious: Yes (Hospitalization)
  Sender: FDA-Public Use
  Company Number: US-SA-2017SA089629

PATIENT
  Age: 70 Year
  Sex: Male
  Weight: 120.2 kg

DRUGS (9)
  1. COLCHICINE. [Concomitant]
     Active Substance: COLCHICINE
     Indication: GOUT
     Dosage: DAILY DOSE: 0.3
     Route: 065
     Dates: start: 2017
  2. ZETIA [Concomitant]
     Active Substance: EZETIMIBE
     Indication: BLOOD CHOLESTEROL
     Route: 065
     Dates: start: 1997
  3. HYTRIN [Concomitant]
     Active Substance: TERAZOSIN HYDROCHLORIDE
     Indication: GOUT
     Dosage: DAILY DOSE: 5 (UNITS: UNKNOWN)
     Route: 065
     Dates: start: 2017
  4. LIPITOR [Concomitant]
     Active Substance: ATORVASTATIN CALCIUM
     Indication: BLOOD CHOLESTEROL
     Dosage: DAILY DOSE: 80 (UNITS: UNKNOWN)
     Route: 065
     Dates: start: 1997
  5. PREVACID [Concomitant]
     Active Substance: LANSOPRAZOLE
     Indication: GASTROOESOPHAGEAL REFLUX DISEASE
     Dosage: DAILY DOSE: 15 (UNITS: UNKNOWN)
     Route: 065
     Dates: start: 2000
  6. HUMALOG [Concomitant]
     Active Substance: INSULIN LISPRO
     Indication: DIABETES MELLITUS
     Dosage: DAILY DOSE: SLIDING SCALE
     Route: 065
     Dates: start: 2007
  7. AMLODIPINE [Concomitant]
     Active Substance: AMLODIPINE BESYLATE
     Indication: HYPERTENSION
     Dosage: DAILY DOSE: 10 (UNITS: UNKNOWN)
     Route: 065
     Dates: start: 2008
  8. SOLOSTAR [Suspect]
     Active Substance: DEVICE
     Indication: TYPE 2 DIABETES MELLITUS
     Dates: start: 2007
  9. LANTUS SOLOSTAR [Suspect]
     Active Substance: INSULIN GLARGINE
     Indication: TYPE 2 DIABETES MELLITUS
     Dosage: DOSE: 20-40 U
     Route: 051
     Dates: start: 2007

REACTIONS (5)
  - Arthritis [Unknown]
  - Drug ineffective [Unknown]
  - Renal disorder [Unknown]
  - Bladder disorder [Unknown]
  - Blood glucose increased [Recovered/Resolved]

NARRATIVE: CASE EVENT DATE: 201701
